FAERS Safety Report 24120670 (Version 1)
Quarter: 2024Q3

REPORT INFORMATION
  Report Type: Spontaneous
  Country: GB (occurrence: GB)
  Receive Date: 20240722
  Receipt Date: 20240722
  Transmission Date: 20241017
  Serious: Yes (Other)
  Sender: B BRAUN
  Company Number: GB-B.Braun Medical Inc.-2159323

PATIENT
  Sex: Female

DRUGS (3)
  1. METRONIDAZOLE [Suspect]
     Active Substance: METRONIDAZOLE
  2. AMOXICILLIN [Concomitant]
     Active Substance: AMOXICILLIN
  3. PENICILLIN V [Concomitant]
     Active Substance: PENICILLIN V

REACTIONS (3)
  - Speech disorder developmental [Recovering/Resolving]
  - Thinking abnormal [Recovering/Resolving]
  - Balance disorder [Recovering/Resolving]
